FAERS Safety Report 7784976-0 (Version None)
Quarter: 2011Q3

REPORT INFORMATION
  Report Type: 
  Country: None (occurrence: None)
  Receive Date: 20110928
  Receipt Date: 20110919
  Transmission Date: 20111222
  Serious: Yes (Other)
  Sender: FDA-Public Use
  Company Number: PHEH2011US04467

PATIENT
  Sex: Female

DRUGS (14)
  1. TRIAMTERENE [Concomitant]
     Dosage: 37.5-25MG, QD
  2. NEXIUM [Concomitant]
     Dosage: 40 MG, QD
  3. SIMVASTATIN [Concomitant]
     Dosage: 20 MG, QD
  4. MULTI-VITAMINS [Concomitant]
     Dosage: UNK UKN, UNK
  5. RECLAST [Suspect]
     Dosage: 5 MG/ 100ML
     Route: 042
     Dates: start: 20110819
  6. ASPIRIN [Concomitant]
     Dosage: 81 MG, QD
  7. COUMADIN [Concomitant]
     Dosage: 5 MG, UNK
  8. SOTALOL HCL [Concomitant]
     Dosage: 80 MG, BID
  9. DILTIAZEM HCL [Concomitant]
     Dosage: 240 MG, QD
  10. RECLAST [Suspect]
     Dosage: UNK UKN, UNK
     Route: 042
  11. RECLAST [Suspect]
     Dosage: UNK UKN, UNK
     Route: 042
  12. AMOXICILLIN [Suspect]
     Dosage: UNK UKN, BID
  13. MELOXICAM [Concomitant]
     Dosage: 15 MG, QD
  14. CALCIUM D [Concomitant]
     Dosage: 600 MG, QD

REACTIONS (8)
  - HIATUS HERNIA [None]
  - EAR DISCOMFORT [None]
  - GASTROOESOPHAGEAL REFLUX DISEASE [None]
  - EAR PAIN [None]
  - PYREXIA [None]
  - PAIN [None]
  - WEIGHT DECREASED [None]
  - INFLUENZA LIKE ILLNESS [None]
